FAERS Safety Report 16277479 (Version 1)
Quarter: 2019Q2

REPORT INFORMATION
  Report Type: Report from Study
  Country: IN (occurrence: IN)
  Receive Date: 20190506
  Receipt Date: 20190506
  Transmission Date: 20190711
  Serious: Yes (Death, Hospitalization)
  Sender: FDA-Public Use
  Company Number: IN-BAYER-2018-177516

PATIENT
  Age: 61 Year
  Sex: Male

DRUGS (3)
  1. NEXAVAR [Suspect]
     Active Substance: SORAFENIB
     Indication: HEPATOCELLULAR CARCINOMA
     Dosage: 400 MG
     Route: 048
     Dates: start: 20180531
  2. NEXAVAR [Suspect]
     Active Substance: SORAFENIB
     Indication: HEPATOCELLULAR CARCINOMA
     Dosage: REDUCED TO 2 TABLETS ON DAILY BASIS
  3. NEXAVAR [Suspect]
     Active Substance: SORAFENIB
     Indication: HEPATOCELLULAR CARCINOMA
     Dosage: DAILY 4 TABLETS PER DAY

REACTIONS (10)
  - Hypotension [Fatal]
  - Weight decreased [None]
  - Palmar-plantar erythrodysaesthesia syndrome [Unknown]
  - Dehydration [Fatal]
  - Internal haemorrhage [Fatal]
  - Decreased appetite [None]
  - Peripheral swelling [Unknown]
  - Blood uric acid increased [Fatal]
  - Rash erythematous [Unknown]
  - Rash [Unknown]

NARRATIVE: CASE EVENT DATE: 2018
